FAERS Safety Report 24280646 (Version 1)
Quarter: 2024Q3

REPORT INFORMATION
  Report Type: Spontaneous
  Country: JP (occurrence: JP)
  Receive Date: 20240904
  Receipt Date: 20240904
  Transmission Date: 20241016
  Serious: Yes (Hospitalization)
  Sender: ADVANZ PHARMA
  Company Number: JP-ADVANZ PHARMA-202408007133

PATIENT

DRUGS (1)
  1. ZONISAMIDE [Suspect]
     Active Substance: ZONISAMIDE
     Indication: Product used for unknown indication
     Dosage: UNK (TRERIEF, ORODISPERSIBLE TABLET)
     Route: 048

REACTIONS (1)
  - Coronavirus infection [Unknown]
